FAERS Safety Report 6979084-2 (Version None)
Quarter: 2010Q3

REPORT INFORMATION
  Report Type: 
  Country: None (occurrence: None)
  Receive Date: 20100908
  Receipt Date: 20100830
  Transmission Date: 20110219
  Serious: Yes (Hospitalization)
  Sender: FDA-Public Use
  Company Number: 001682

PATIENT
  Sex: Male
  Weight: 64 kg

DRUGS (9)
  1. LACOSAMIDE [Suspect]
     Indication: STATUS EPILEPTICUS
     Dosage: (100 MG 1X/12 HOURS INTRAVENOUS), (100 MG, ONCE INTRAVENOUS)
     Route: 042
     Dates: start: 20090826, end: 20090827
  2. LACOSAMIDE [Suspect]
     Indication: STATUS EPILEPTICUS
     Dosage: (100 MG 1X/12 HOURS INTRAVENOUS), (100 MG, ONCE INTRAVENOUS)
     Route: 042
     Dates: start: 20090831, end: 20090831
  3. LEVETIRACETAM [Concomitant]
  4. VANCOMYCIN [Concomitant]
  5. PHENOBARBITAL [Concomitant]
  6. AMPICILLIN SODIUM [Concomitant]
  7. DANTROLENE SODIUM [Concomitant]
  8. FOSPHENYTOIN [Concomitant]
  9. ZOSYN [Concomitant]

REACTIONS (10)
  - ACUTE RESPIRATORY DISTRESS SYNDROME [None]
  - CONTINUOUS HAEMODIAFILTRATION [None]
  - CONVULSION [None]
  - ENTEROBACTER TEST POSITIVE [None]
  - FLUID OVERLOAD [None]
  - PLEURAL EFFUSION [None]
  - PNEUMONIA [None]
  - PULMONARY EMBOLISM [None]
  - RASH [None]
  - RENAL FAILURE ACUTE [None]
